FAERS Safety Report 16517929 (Version 1)
Quarter: 2019Q3

REPORT INFORMATION
  Report Type: Spontaneous
  Country: US (occurrence: US)
  Receive Date: 20190702
  Receipt Date: 20190702
  Transmission Date: 20191004
  Serious: Yes (Life-Threatening, Hospitalization, Disabling)
  Sender: FDA-Public Use
  Company Number: None

PATIENT
  Age: 74 Year
  Sex: Male
  Weight: 99 kg

DRUGS (2)
  1. MAGNEVIST [Suspect]
     Active Substance: GADOPENTETATE DIMEGLUMINE
     Route: 042
  2. HIGH BLOOD PRESSURE MED [Concomitant]

REACTIONS (4)
  - Drug clearance decreased [None]
  - Malaise [None]
  - Contrast media toxicity [None]
  - Acute kidney injury [None]

NARRATIVE: CASE EVENT DATE: 20180904
